FAERS Safety Report 6637435-2 (Version None)
Quarter: 2010Q1

REPORT INFORMATION
  Report Type: 
  Country: None (occurrence: None)
  Receive Date: 20100311
  Receipt Date: 20100301
  Transmission Date: 20100710
  Serious: Yes (Hospitalization, Other)
  Sender: FDA-Public Use
  Company Number: 2006US001820

PATIENT
  Age: 62 Year
  Sex: Male
  Weight: 75 kg

DRUGS (11)
  1. AMEVIVE [Suspect]
     Indication: PSORIASIS
     Dosage: 15 MG, WEEKLY, INTRAMUSCULAR
     Route: 030
     Dates: start: 20060317, end: 20060519
  2. INSULIN (INSULIN) [Concomitant]
  3. HYDROCHLOROTHIAZIDE [Concomitant]
  4. LANTUS [Concomitant]
  5. CALCITRIOL [Concomitant]
  6. LISINOPRIL [Concomitant]
  7. HYDROCORTISONE/SALICYLIC ACID OINTMENT (HYDROCORTISONE, SALICYLIC ACID [Concomitant]
  8. CELESTODERM (BETAMETHASONE VALERATE) [Concomitant]
  9. HUMULIN N (INSULIN HUMAN) [Concomitant]
  10. TIMOPTIC [Concomitant]
  11. EPREX [Concomitant]

REACTIONS (8)
  - ABDOMINAL PAIN UPPER [None]
  - BILE DUCT STONE [None]
  - BLOOD CREATININE INCREASED [None]
  - BONE MARROW FAILURE [None]
  - HYPERPARATHYROIDISM [None]
  - JAUNDICE CHOLESTATIC [None]
  - PANCREATITIS CHRONIC [None]
  - RENAL DISORDER [None]
